FAERS Safety Report 6550077-2 (Version None)
Quarter: 2010Q1

REPORT INFORMATION
  Report Type: 
  Country: None (occurrence: None)
  Receive Date: 20100119
  Receipt Date: 20100105
  Transmission Date: 20100710
  Serious: Yes (Death)
  Sender: FDA-Public Use
  Company Number: 2010-0165

PATIENT
  Sex: Male

DRUGS (1)
  1. APO-GO AMOPOULES (APO-GO) (APOMORPHINE HYDROCHLORIDE) (APOMORPHINE HYD [Suspect]

REACTIONS (1)
  - DEATH [None]
